FAERS Safety Report 9449968 (Version 3)
Quarter: 2013Q3

REPORT INFORMATION
  Report Type: Spontaneous
  Country: US (occurrence: US)
  Receive Date: 20130809
  Receipt Date: 20130923
  Transmission Date: 20140515
  Serious: No
  Sender: FDA-Public Use
  Company Number: US-009507513-1308USA000690

PATIENT
  Age: 80 Year
  Sex: Male

DRUGS (6)
  1. DULERA [Suspect]
     Indication: ASTHMA
     Dosage: 2 INHALATIONS TWICE DAILY
     Route: 055
     Dates: start: 20130424, end: 20130627
  2. POTASSIUM (UNSPECIFIED) [Concomitant]
  3. BUPROPION HYDROCHLORIDE [Concomitant]
  4. SPIRIVA [Concomitant]
  5. PRILOSEC [Concomitant]
     Route: 048
  6. PRINIVIL [Concomitant]
     Route: 048

REACTIONS (1)
  - Drug ineffective [Unknown]
